FAERS Safety Report 7464478-1 (Version None)
Quarter: 2011Q2

REPORT INFORMATION
  Report Type: 
  Country: None (occurrence: None)
  Receive Date: 20110509
  Receipt Date: 20110425
  Transmission Date: 20111010
  Serious: Yes (Other)
  Sender: FDA-Public Use
  Company Number: US-JNJFOC-20110412386

PATIENT
  Sex: Female
  Weight: 58.97 kg

DRUGS (14)
  1. NEURONTIN [Concomitant]
     Indication: NEUROPATHY PERIPHERAL
     Route: 048
  2. FENTANYL-100 [Suspect]
     Indication: COMPLEX REGIONAL PAIN SYNDROME
     Dosage: NDC: 0781-7244-55
     Route: 062
  3. SOMA [Concomitant]
     Indication: MUSCLE RELAXANT THERAPY
     Route: 048
  4. SOMA [Concomitant]
     Indication: SLEEP DISORDER
     Route: 048
  5. RELAFEN [Concomitant]
     Indication: ANTIINFLAMMATORY THERAPY
     Route: 048
  6. SKELAXIN [Concomitant]
     Indication: SLEEP DISORDER
     Route: 048
  7. UNKNOWN MEDICATION [Concomitant]
     Indication: PAIN
     Dosage: EVERY 4 TO 6 MONTHS
     Route: 008
  8. DURAGESIC-50 [Suspect]
     Route: 062
  9. TOPAMAX [Concomitant]
     Indication: RELAXATION THERAPY
     Route: 048
  10. CYMBALTA [Concomitant]
     Indication: ANTIDEPRESSANT THERAPY
     Route: 048
  11. AMBIEN [Concomitant]
     Indication: SLEEP DISORDER
     Route: 048
  12. SKELAXIN [Concomitant]
     Indication: MUSCLE RELAXANT THERAPY
     Route: 048
  13. DURAGESIC-50 [Suspect]
     Indication: COMPLEX REGIONAL PAIN SYNDROME
     Route: 062
  14. KETAMINE [Concomitant]
     Dosage: 4 HOURS DAILY FOR 3 DAYS EVERY 3 TO 4 MONTHS
     Route: 042

REACTIONS (6)
  - PAIN [None]
  - NERVE INJURY [None]
  - CONDITION AGGRAVATED [None]
  - THYROID DISORDER [None]
  - HYPERSOMNIA [None]
  - THERAPEUTIC RESPONSE DECREASED [None]
